FAERS Safety Report 16767817 (Version 1)
Quarter: 2019Q3

REPORT INFORMATION
  Report Type: Spontaneous
  Country: PT (occurrence: PT)
  Receive Date: 20190903
  Receipt Date: 20190903
  Transmission Date: 20191005
  Serious: Yes (Other)
  Sender: FDA-Public Use
  Company Number: PHHY2019PT117207

PATIENT
  Age: 41 Year
  Sex: Female

DRUGS (4)
  1. POSACONAZOLE [Suspect]
     Active Substance: POSACONAZOLE
     Indication: PRODUCT USED FOR UNKNOWN INDICATION
     Dosage: 300 MG, QD
     Route: 048
  2. AMPHOTERICIN B. [Suspect]
     Active Substance: AMPHOTERICIN B
     Indication: KERATITIS
     Route: 065
  3. VORICONAZOLE. [Suspect]
     Active Substance: VORICONAZOLE
     Indication: KERATITIS
     Route: 065
  4. POSACONAZOLE [Suspect]
     Active Substance: POSACONAZOLE
     Dosage: 400 MILLIGRAM, TWO TIMES DAILY(BID)
     Route: 048

REACTIONS (4)
  - Hypokalaemia [Recovered/Resolved]
  - Therapy non-responder [Unknown]
  - Blood creatinine increased [Recovered/Resolved]
  - Product use in unapproved indication [Unknown]
